FAERS Safety Report 8532805-X (Version None)
Quarter: 2012Q3

REPORT INFORMATION
  Report Type: 
  Country: None (occurrence: None)
  Receive Date: 20120724
  Receipt Date: 20120720
  Transmission Date: 20120928
  Serious: Yes (Life-Threatening, Hospitalization)
  Sender: FDA-Public Use
  Company Number: PHEH2012US010729

PATIENT
  Sex: Female

DRUGS (7)
  1. GABAPENTIN [Concomitant]
     Dosage: 300 MG, UNK
     Route: 048
  2. LISINOPRIL [Concomitant]
     Route: 048
  3. GLEEVEC [Suspect]
     Indication: CHRONIC MYELOID LEUKAEMIA
     Dosage: 400 MG, DAILY
     Route: 048
     Dates: start: 20090101
  4. LOVASTATIN [Concomitant]
     Route: 048
  5. FUROSEMIDE [Concomitant]
     Route: 048
  6. LEVOTHYROXINE SODIUM [Concomitant]
     Route: 048
  7. INSULIN [Concomitant]

REACTIONS (17)
  - OVARIAN CANCER [None]
  - NEOPLASM MALIGNANT [None]
  - LEIOMYOSARCOMA [None]
  - ASCITES [None]
  - WEIGHT DECREASED [None]
  - MYALGIA [None]
  - ENDOMETRIAL CANCER [None]
  - ANXIETY [None]
  - IMPAIRED HEALING [None]
  - OBESITY [None]
  - PAIN [None]
  - FLUID RETENTION [None]
  - OEDEMA PERIPHERAL [None]
  - OVARIAN CYST [None]
  - TYPE 2 DIABETES MELLITUS [None]
  - HYPERTENSION [None]
  - URINARY TRACT INFECTION [None]
